FAERS Safety Report 9840735 (Version 2)
Quarter: 2014Q1

REPORT INFORMATION
  Report Type: Spontaneous
  Country: US (occurrence: US)
  Receive Date: 20140124
  Receipt Date: 20140213
  Transmission Date: 20141002
  Serious: Yes (Other)
  Sender: FDA-Public Use
  Company Number: US-JNJFOC-20140109674

PATIENT
  Sex: Female
  Weight: 99.79 kg

DRUGS (11)
  1. DURAGESIC [Suspect]
     Indication: BACK PAIN
     Route: 062
     Dates: end: 2003
  2. DURAGESIC [Suspect]
     Indication: BACK PAIN
     Route: 062
     Dates: start: 2003, end: 2004
  3. LIPITOR [Concomitant]
     Indication: BLOOD CHOLESTEROL INCREASED
     Route: 065
  4. VICTOZA [Concomitant]
     Indication: TYPE 2 DIABETES MELLITUS
     Route: 065
  5. METOPROLOL [Concomitant]
     Indication: HYPERTENSION
     Route: 065
  6. SIMVASTATIN [Concomitant]
     Indication: HYPERTENSION
     Route: 065
  7. CYMBALTA [Concomitant]
     Indication: ANXIETY
     Route: 065
  8. CYMBALTA [Concomitant]
     Indication: DEPRESSION
     Route: 065
  9. NEXIUM [Concomitant]
     Indication: GASTROOESOPHAGEAL REFLUX DISEASE
     Route: 065
  10. POTASSIUM [Concomitant]
     Route: 065
  11. ALLOPURINOL [Concomitant]
     Indication: GOUT
     Route: 065

REACTIONS (4)
  - Weight increased [Unknown]
  - Diabetes mellitus [Unknown]
  - Pain [Unknown]
  - Product adhesion issue [Unknown]
